FAERS Safety Report 8834317 (Version 1)
Quarter: 2012Q4

REPORT INFORMATION
  Report Type: Spontaneous
  Country: US (occurrence: None)
  Receive Date: 20121009
  Receipt Date: 20121009
  Transmission Date: 20130627
  Serious: Yes (Death)
  Sender: FDA-Public Use
  Company Number: SP06103

PATIENT
  Age: 53 Year
  Sex: Female

DRUGS (2)
  1. OSMOPREP [Suspect]
     Indication: BOWEL PREPARATION
     Dosage: 32 tablets, Oral
     Route: 048
     Dates: start: 20120927
  2. MULTIVITAMINS [Concomitant]

REACTIONS (5)
  - Malaise [None]
  - Vomiting [None]
  - Dizziness [None]
  - Diarrhoea [None]
  - Myocardial infarction [None]
